FAERS Safety Report 13681971 (Version 1)
Quarter: 2017Q2

REPORT INFORMATION
  Report Type: Spontaneous
  Country: MX (occurrence: MX)
  Receive Date: 20170623
  Receipt Date: 20170623
  Transmission Date: 20170830
  Serious: Yes (Death)
  Sender: FDA-Public Use
  Company Number: MX-NOVOPROD-550445

PATIENT
  Sex: Male

DRUGS (3)
  1. NOVOSEVEN RT [Suspect]
     Active Substance: COAGULATION FACTOR VIIA RECOMBINANT HUMAN
     Indication: MUSCLE HAEMORRHAGE
  2. NOVOSEVEN RT [Suspect]
     Active Substance: COAGULATION FACTOR VIIA RECOMBINANT HUMAN
     Indication: HAEMOPHILIA B WITH ANTI FACTOR IX
     Dosage: 10 MG EVERY 6 HOURS
     Route: 065
     Dates: start: 20170606
  3. NOVOSEVEN RT [Suspect]
     Active Substance: COAGULATION FACTOR VIIA RECOMBINANT HUMAN
     Indication: HAEMORRHAGE
     Dosage: 13 MG EVERY 4 HOURS
     Route: 065
     Dates: start: 20170614

REACTIONS (1)
  - Death [Fatal]
